FAERS Safety Report 7384143-9 (Version None)
Quarter: 2011Q1

REPORT INFORMATION
  Report Type: 
  Country: None (occurrence: None)
  Receive Date: 20110330
  Receipt Date: 20110324
  Transmission Date: 20110831
  Serious: Yes (Other)
  Sender: FDA-Public Use
  Company Number: A0920549A

PATIENT
  Age: 52 Year
  Sex: Male

DRUGS (1)
  1. AVODART [Suspect]
     Route: 065

REACTIONS (3)
  - ABDOMINAL PAIN [None]
  - GASTRITIS [None]
  - DYSPEPSIA [None]
